FAERS Safety Report 16678818 (Version 1)
Quarter: 2019Q3

REPORT INFORMATION
  Report Type: Spontaneous
  Country: US (occurrence: US)
  Receive Date: 20190807
  Receipt Date: 20190807
  Transmission Date: 20191004
  Serious: Yes (Other)
  Sender: FDA-Public Use
  Company Number: US-RADIUS HEALTH INC.-2019US001703

PATIENT
  Sex: Female

DRUGS (1)
  1. TYMLOS [Suspect]
     Active Substance: ABALOPARATIDE
     Indication: OSTEOPOROSIS POSTMENOPAUSAL
     Dosage: 80 MCG, UNK
     Route: 058
     Dates: end: 20190528

REACTIONS (5)
  - Anaemia [Unknown]
  - Hyperkalaemia [Unknown]
  - Renal impairment [Recovering/Resolving]
  - Cardiac failure congestive [Unknown]
  - Blood calcium increased [Recovering/Resolving]
